FAERS Safety Report 22346954 (Version 1)
Quarter: 2023Q2

REPORT INFORMATION
  Report Type: Report from Study
  Country: US (occurrence: US)
  Receive Date: 20230520
  Receipt Date: 20230520
  Transmission Date: 20230722
  Serious: Yes (Other)
  Sender: FDA-Public Use
  Company Number: US-JNJFOC-20230530451

PATIENT
  Age: 49 Year
  Sex: Female

DRUGS (4)
  1. SPRAVATO [Suspect]
     Active Substance: ESKETAMINE
     Indication: Depression
     Dosage: 56 MG, 2 TOTAL DOSES
     Dates: start: 20230124, end: 20230126
  2. SPRAVATO [Suspect]
     Active Substance: ESKETAMINE
     Dosage: 84 MG, 8 TOTAL DOSES
     Dates: start: 20230131, end: 20230228
  3. SPRAVATO [Suspect]
     Active Substance: ESKETAMINE
     Dosage: 56 MG, 2 TOTAL DOSES
     Dates: start: 20230307, end: 20230314
  4. SPRAVATO [Suspect]
     Active Substance: ESKETAMINE
     Dosage: 84MG, 8 TOTAL DOSES
     Dates: start: 20230323, end: 20230509

REACTIONS (3)
  - Surgery [Unknown]
  - Depression [Unknown]
  - Therapeutic product effect decreased [Unknown]

NARRATIVE: CASE EVENT DATE: 20230101
